FAERS Safety Report 8387116-2 (Version None)
Quarter: 2012Q2

REPORT INFORMATION
  Report Type: 
  Country: None (occurrence: None)
  Receive Date: 20120525
  Receipt Date: 20120516
  Transmission Date: 20120825
  Serious: Yes (Other)
  Sender: FDA-Public Use
  Company Number: JP-SANOFI-AVENTIS-2012SA036242

PATIENT
  Sex: Female

DRUGS (6)
  1. GRANISETRON HYDROCHLORIDE [Concomitant]
     Indication: PREMEDICATION
  2. DEXAMETHASONE [Concomitant]
  3. DOCETAXEL [Suspect]
     Indication: UTERINE LEIOMYOSARCOMA
     Dosage: ON DAY 8, TRIWEEKLY
     Route: 065
  4. DEXAMETHASONE [Concomitant]
     Indication: PREMEDICATION
  5. GEMCITABINE [Suspect]
     Indication: UTERINE LEIOMYOSARCOMA
     Dosage: ON DAY 1 AND 8
     Route: 065
  6. METOCLOPRAMIDE [Concomitant]

REACTIONS (1)
  - RESPIRATORY DISORDER [None]
